FAERS Safety Report 4763465-1 (Version None)
Quarter: 2005Q3

REPORT INFORMATION
  Report Type: 
  Country: None (occurrence: None)
  Receive Date: 20050902
  Receipt Date: 20050824
  Transmission Date: 20060218
  Serious: No
  Sender: FDA-Public Use
  Company Number: 20052406

PATIENT
  Sex: Female

DRUGS (1)
  1. LIORESAL [Suspect]
     Indication: MUSCLE SPASTICITY
     Dosage: 275 MCG, DAILY INTRATHECAL
     Route: 037

REACTIONS (8)
  - CATHETER RELATED COMPLICATION [None]
  - DRUG WITHDRAWAL SYNDROME [None]
  - HYPERTONIA [None]
  - IRRITABILITY [None]
  - MUSCLE SPASTICITY [None]
  - PYREXIA [None]
  - REBOUND EFFECT [None]
  - TACHYCARDIA [None]
